FAERS Safety Report 4377774-1 (Version None)
Quarter: 2004Q2

REPORT INFORMATION
  Report Type: 
  Country: None (occurrence: None)
  Receive Date: 20040615
  Receipt Date: 20040615
  Transmission Date: 20050107
  Serious: Yes (Life-Threatening, Hospitalization)
  Sender: FDA-Public Use
  Company Number: None

PATIENT
  Sex: Female
  Weight: 64.8644 kg

DRUGS (8)
  1. DOXORUBICIN HCL [Suspect]
     Indication: HODGKIN'S DISEASE
     Dosage: 42 MG (25 MG/M2) IV DAY 1, DAY 15
     Route: 042
     Dates: start: 20040512
  2. DOXORUBICIN HCL [Suspect]
     Indication: HODGKIN'S DISEASE
     Dosage: 42 MG (25 MG/M2) IV DAY 1, DAY 15
     Route: 042
     Dates: start: 20040526
  3. BLEOMYCIN [Suspect]
     Indication: HODGKIN'S DISEASE
     Dosage: 16 UNITS (10 U/M2) DAY 1, 15  IV
     Route: 042
     Dates: start: 20040812
  4. BLEOMYCIN [Suspect]
     Indication: HODGKIN'S DISEASE
     Dosage: 16 UNITS (10 U/M2) DAY 1, 15  IV
     Route: 042
     Dates: start: 20040826
  5. VINVLASTINE [Suspect]
     Indication: HODGKIN'S DISEASE
     Dosage: 10 MG IV (6 MG/ML) DAY 1M 15
     Route: 042
     Dates: start: 20040512
  6. VINVLASTINE [Suspect]
     Indication: HODGKIN'S DISEASE
     Dosage: 10 MG IV (6 MG/ML) DAY 1M 15
     Route: 042
     Dates: start: 20040526
  7. DACARBAZINE [Suspect]
     Indication: HODGKIN'S DISEASE
     Dosage: 630 MG IV (375 MG/M2) DAY 1, 15
     Route: 042
     Dates: start: 20040512
  8. DACARBAZINE [Suspect]
     Indication: HODGKIN'S DISEASE
     Dosage: 630 MG IV (375 MG/M2) DAY 1, 15
     Route: 042
     Dates: start: 20040526

REACTIONS (2)
  - PNEUMONIA [None]
  - PULMONARY EMBOLISM [None]
